FAERS Safety Report 5336615-6 (Version None)
Quarter: 2007Q2

REPORT INFORMATION
  Report Type: 
  Country: None (occurrence: None)
  Receive Date: 20070524
  Receipt Date: 20070518
  Transmission Date: 20071010
  Serious: Yes (Hospitalization)
  Sender: FDA-Public Use
  Company Number: 2007-02449

PATIENT
  Age: 62 Year
  Sex: Male

DRUGS (4)
  1. PREDNISONE TAB [Suspect]
     Indication: PSORIATIC ARTHROPATHY
     Dosage: 5 MG, DAILY, ORAL, 15 MG, DAILY, ORAL
     Route: 048
  2. ENBREL [Suspect]
     Indication: PSORIATIC ARTHROPATHY
     Dosage: 50 MG 1/WEEK, SUBCUTANEOUS
     Route: 058
     Dates: start: 20031025
  3. LACTULOSE [Concomitant]
  4. TOPROL-XL [Concomitant]

REACTIONS (2)
  - HAEMATOCRIT DECREASED [None]
  - OSTEONECROSIS [None]
